FAERS Safety Report 25705711 (Version 1)
Quarter: 2025Q3

REPORT INFORMATION
  Report Type: Spontaneous
  Country: CH (occurrence: CH)
  Receive Date: 20250820
  Receipt Date: 20250820
  Transmission Date: 20251021
  Serious: Yes (Death)
  Sender: STEMLINE THERAPEUTICS
  Company Number: CH-STEMLINE THERAPEUTICS, INC-2025-STML-CH002894

PATIENT

DRUGS (1)
  1. ELZONRIS [Suspect]
     Active Substance: TAGRAXOFUSP-ERZS
     Indication: Blastic plasmacytoid dendritic cell neoplasia
     Route: 042
     Dates: start: 20250110

REACTIONS (1)
  - Leukaemia [Fatal]
